FAERS Safety Report 19710114 (Version 5)
Quarter: 2021Q4

REPORT INFORMATION
  Report Type: Spontaneous
  Country: US (occurrence: US)
  Receive Date: 20210816
  Receipt Date: 20211229
  Transmission Date: 20220303
  Serious: Yes (Other)
  Sender: FDA-Public Use
  Company Number: US-PFIZER INC-2019189328

PATIENT
  Age: 62 Year
  Sex: Male

DRUGS (1)
  1. LYRICA [Suspect]
     Active Substance: PREGABALIN
     Dosage: 75 MG, QID (FOUR TIMES DAILY)
     Route: 048

REACTIONS (3)
  - Neuropathy peripheral [Unknown]
  - COVID-19 [Unknown]
  - Off label use [Unknown]
